FAERS Safety Report 18116322 (Version 8)
Quarter: 2020Q3

REPORT INFORMATION
  Report Type: Spontaneous
  Country: US (occurrence: US)
  Receive Date: 20200806
  Receipt Date: 20200828
  Transmission Date: 20201103
  Serious: No
  Sender: FDA-Public Use
  Company Number: US-AMGEN-USASP2020125640

PATIENT
  Age: 57 Year
  Sex: Male
  Weight: 106.12 kg

DRUGS (4)
  1. NEULASTA [Suspect]
     Active Substance: PEGFILGRASTIM
     Dosage: UNK UNK, Q3WK
     Route: 065
  2. NEULASTA [Suspect]
     Active Substance: PEGFILGRASTIM
     Dosage: UNK UNK, Q3WK
     Route: 065
  3. NEULASTA [Suspect]
     Active Substance: PEGFILGRASTIM
     Indication: NEUTROPENIA
     Dosage: UNK UNK, Q3WK
     Route: 065
  4. NEULASTA [Suspect]
     Active Substance: PEGFILGRASTIM
     Dosage: UNK UNK, Q3WK
     Route: 065

REACTIONS (7)
  - Needle issue [Unknown]
  - Application site pain [Unknown]
  - Device adhesion issue [Unknown]
  - Application site bruise [Unknown]
  - Application site haemorrhage [Unknown]
  - Device occlusion [Unknown]
  - Device difficult to use [Unknown]

NARRATIVE: CASE EVENT DATE: 202007
